FAERS Safety Report 6657888-3 (Version None)
Quarter: 2010Q1

REPORT INFORMATION
  Report Type: 
  Country: None (occurrence: None)
  Receive Date: 20100325
  Receipt Date: 20100309
  Transmission Date: 20100710
  Serious: Yes (Death)
  Sender: FDA-Public Use
  Company Number: 1000012466

PATIENT
  Age: 58 Year
  Sex: Female
  Weight: 57 kg

DRUGS (1)
  1. ESCITALOPRAM [Suspect]
     Indication: DEPRESSION
     Dosage: 10 MG, ORAL
     Route: 048
     Dates: start: 20070715

REACTIONS (10)
  - ALCOHOL USE [None]
  - ARRHYTHMOGENIC RIGHT VENTRICULAR DYSPLASIA [None]
  - ARTERIOSCLEROSIS [None]
  - ARTERIOSCLEROSIS CORONARY ARTERY [None]
  - BREAST CANCER [None]
  - CHOLELITHIASIS [None]
  - DRUG LEVEL INCREASED [None]
  - PULMONARY CONGESTION [None]
  - SUDDEN DEATH [None]
  - UTERINE MASS [None]
